FAERS Safety Report 7841883-2 (Version None)
Quarter: 2011Q4

REPORT INFORMATION
  Report Type: 
  Country: None (occurrence: None)
  Receive Date: 20111025
  Receipt Date: 20111021
  Transmission Date: 20120403
  Serious: Yes (Death)
  Sender: FDA-Public Use
  Company Number: PHHY2011BR93546

PATIENT
  Age: 84 Year
  Sex: Male

DRUGS (4)
  1. SEROQUEL [Concomitant]
     Indication: AGITATION
     Dosage: 100 MG, 1 TABLET A DAY
     Route: 048
  2. ASPIRIN [Concomitant]
     Dosage: 100 MG, UNK
  3. EXELON [Suspect]
     Indication: DEMENTIA ALZHEIMER'S TYPE
     Dosage: 18 MG//10CM2 , 1 PATCH A DAY
     Route: 062
  4. GLYBURIDE [Concomitant]
     Indication: DIABETES MELLITUS
     Dosage: 5 MG, BID

REACTIONS (1)
  - CEREBROVASCULAR ACCIDENT [None]
